FAERS Safety Report 6174325-6 (Version None)
Quarter: 2009Q2

REPORT INFORMATION
  Report Type: 
  Country: None (occurrence: None)
  Receive Date: 20090430
  Receipt Date: 20080515
  Transmission Date: 20091009
  Serious: No
  Sender: FDA-Public Use
  Company Number: US-ASTRAZENECA-2008UW10116

PATIENT
  Age: 68 Year
  Sex: Male

DRUGS (12)
  1. NEXIUM [Suspect]
     Route: 048
  2. WELCHOL [Concomitant]
  3. LIPITOR [Concomitant]
  4. ZETIA [Concomitant]
  5. BIOLYTRAL [Concomitant]
  6. TESTOSTERONE [Concomitant]
  7. CALCIUM [Concomitant]
  8. NIASPAN [Concomitant]
  9. LOVAZA [Concomitant]
  10. MULTI-VITAMIN [Concomitant]
  11. ALOVERA JUICE [Concomitant]
  12. GLUCOSAMINE [Concomitant]

REACTIONS (1)
  - GYNAECOMASTIA [None]
